FAERS Safety Report 8717478 (Version 2)
Quarter: 2012Q4

REPORT INFORMATION
  Report Type: 
  Country: US (occurrence: US)
  Receive Date: 20120810
  Receipt Date: 20121002
  Transmission Date: 20130627
  Serious: Yes (Other)
  Sender: FDA-Public Use
  Company Number: US-JNJFOC-20120801964

PATIENT
  Age: 83 None
  Sex: Female
  Weight: 64.41 kg

DRUGS (3)
  1. NUCYNTA ER [Suspect]
     Indication: ARTHRALGIA
     Dosage: twice daily
     Route: 048
     Dates: start: 20120703
  2. NUCYNTA ER [Suspect]
     Indication: ARTHRALGIA
     Dosage: twice daily
     Route: 048
     Dates: end: 20120702
  3. MILK OF MAGNESIA [Concomitant]
     Indication: CONSTIPATION
     Route: 048

REACTIONS (8)
  - Urinary tract infection [Unknown]
  - Hyperhidrosis [Recovering/Resolving]
  - Insomnia [Not Recovered/Not Resolved]
  - Anxiety [Not Recovered/Not Resolved]
  - Oedema peripheral [Not Recovered/Not Resolved]
  - Eating disorder [Not Recovered/Not Resolved]
  - Abnormal loss of weight [Not Recovered/Not Resolved]
  - Decreased appetite [Not Recovered/Not Resolved]
